FAERS Safety Report 23485863 (Version 2)
Quarter: 2024Q1

REPORT INFORMATION
  Report Type: Spontaneous
  Country: JP (occurrence: JP)
  Receive Date: 20240206
  Receipt Date: 20240226
  Transmission Date: 20240409
  Serious: Yes (Life-Threatening, Hospitalization, Other)
  Sender: FDA-Public Use
  Company Number: JP-TEVA-VS-3150105

PATIENT
  Age: 7 Decade
  Sex: Male
  Weight: 99.5 kg

DRUGS (5)
  1. PREDNISOLONE [Suspect]
     Active Substance: PREDNISOLONE
     Indication: Immunosuppressant drug therapy
     Route: 065
  2. HEPARIN [Suspect]
     Active Substance: HEPARIN SODIUM
     Indication: Anticoagulant therapy
     Dosage: 50000 UNITS/DAY
     Route: 065
  3. TACROLIMUS [Suspect]
     Active Substance: TACROLIMUS
     Indication: Immunosuppressant drug therapy
     Route: 065
  4. ELTROMBOPAG [Suspect]
     Active Substance: ELTROMBOPAG
     Indication: Immune thrombocytopenia
     Route: 065
  5. EVEROLIMUS [Suspect]
     Active Substance: EVEROLIMUS
     Indication: Immunosuppressant drug therapy
     Route: 065

REACTIONS (11)
  - Immune thrombocytopenia [Recovering/Resolving]
  - Hepatic infarction [Unknown]
  - Thrombosis [Recovered/Resolved]
  - Embolism [Unknown]
  - Pulmonary embolism [Recovering/Resolving]
  - Hypercoagulation [Unknown]
  - Thrombotic microangiopathy [Unknown]
  - Splenic infarction [Unknown]
  - Post transplant lymphoproliferative disorder [Recovering/Resolving]
  - Heparin resistance [Unknown]
  - Shock [Unknown]
